FAERS Safety Report 10142659 (Version 3)
Quarter: 2014Q2

REPORT INFORMATION
  Report Type: Report from Study
  Country: JP (occurrence: JP)
  Receive Date: 20140430
  Receipt Date: 20140613
  Transmission Date: 20141212
  Serious: Yes (Other)
  Sender: FDA-Public Use
  Company Number: JP-ROCHE-1391273

PATIENT
  Age: 78 Year
  Sex: Female
  Weight: 61 kg

DRUGS (15)
  1. OMALIZUMAB [Suspect]
     Indication: ASTHMA
     Route: 058
     Dates: start: 20121115
  2. OMALIZUMAB [Suspect]
     Route: 065
     Dates: start: 20130704, end: 20130704
  3. PREDONINE [Suspect]
     Indication: ASTHMA
     Route: 048
     Dates: start: 20120405, end: 20130302
  4. PREDONINE [Suspect]
     Route: 048
     Dates: start: 20130302, end: 20130605
  5. PREDONINE [Suspect]
     Route: 048
     Dates: start: 20130606, end: 20130731
  6. PREDONINE [Suspect]
     Route: 048
     Dates: start: 20130801
  7. ADOAIR [Concomitant]
     Route: 065
     Dates: start: 20120405, end: 20121101
  8. SINGULAIR [Concomitant]
     Route: 065
     Dates: start: 20120405
  9. THEOLONG [Concomitant]
     Route: 065
     Dates: start: 20120405
  10. SYMBICORT [Concomitant]
     Route: 065
     Dates: start: 20131105
  11. FLUITRAN [Concomitant]
     Route: 065
     Dates: start: 20130405
  12. ALFAROL [Concomitant]
     Route: 065
     Dates: start: 20130405
  13. GLUCOBAY [Concomitant]
     Route: 065
     Dates: start: 20130405
  14. MEVALOTIN [Concomitant]
     Route: 065
     Dates: start: 20130405
  15. KINEDAK [Concomitant]
     Route: 065
     Dates: start: 20120405

REACTIONS (1)
  - Allergic granulomatous angiitis [Recovered/Resolved]
